FAERS Safety Report 7563388-9 (Version None)
Quarter: 2011Q2

REPORT INFORMATION
  Report Type: 
  Country: None (occurrence: None)
  Receive Date: 20110622
  Receipt Date: 20110603
  Transmission Date: 20111010
  Serious: Yes (Hospitalization)
  Sender: FDA-Public Use
  Company Number: A0932091A

PATIENT
  Age: 73 Year
  Sex: Female
  Weight: 102.3 kg

DRUGS (7)
  1. FOSAMAX [Concomitant]
  2. INSULIN [Concomitant]
  3. LOPRESSOR [Concomitant]
  4. ZOCOR [Concomitant]
  5. AVANDIA [Suspect]
     Indication: DIABETES MELLITUS
     Dosage: 4MG PER DAY
     Route: 048
     Dates: start: 20050801, end: 20060801
  6. ACIPHEX [Concomitant]
  7. ATACAND [Concomitant]

REACTIONS (1)
  - MYOCARDIAL INFARCTION [None]
